FAERS Safety Report 9752848 (Version 7)
Quarter: 2014Q1

REPORT INFORMATION
  Report Type: Report from Study
  Country: AT (occurrence: AT)
  Receive Date: 20131213
  Receipt Date: 20140220
  Transmission Date: 20141002
  Serious: Yes (Life-Threatening, Hospitalization)
  Sender: FDA-Public Use
  Company Number: AT-ROCHE-1307228

PATIENT
  Age: 51 Year
  Sex: Female
  Weight: 77 kg

DRUGS (5)
  1. BEVACIZUMAB [Suspect]
     Indication: BRAIN NEOPLASM MALIGNANT
     Dosage: LAST DOSE PRIOR TO SAE: 13/NOV/2013
     Route: 042
     Dates: start: 20131015, end: 20131119
  2. BEVACIZUMAB [Suspect]
     Route: 042
     Dates: start: 20140103
  3. TEMOZOLOMIDE [Suspect]
     Indication: BRAIN NEOPLASM MALIGNANT
     Dosage: LAST DOSE PRIOR TO SAE: 13/NOV/2013
     Route: 048
     Dates: start: 20131015, end: 20131113
  4. TEMOZOLOMIDE [Suspect]
     Route: 048
     Dates: start: 20140104
  5. DEXPANTHENOL [Concomitant]
     Route: 065
     Dates: start: 20131123

REACTIONS (1)
  - Pancytopenia [Recovered/Resolved]
